FAERS Safety Report 7626753-7 (Version None)
Quarter: 2011Q3

REPORT INFORMATION
  Report Type: 
  Country: None (occurrence: None)
  Receive Date: 20110721
  Receipt Date: 20110708
  Transmission Date: 20111222
  Serious: Yes (Hospitalization, Other)
  Sender: FDA-Public Use
  Company Number: NO-ELI_LILLY_AND_COMPANY-NO201107004192

PATIENT
  Sex: Female

DRUGS (9)
  1. FLUANXOL [Concomitant]
     Indication: SCHIZOPHRENIA
     Dosage: 6 MG, QD
     Route: 048
     Dates: end: 20060101
  2. VALLERGAN [Concomitant]
     Indication: SCHIZOPHRENIA
  3. ATENOLOL [Concomitant]
     Indication: ARRHYTHMIA
     Dosage: 25 MG, QD
     Route: 048
  4. ANAFRANIL [Concomitant]
     Route: 048
  5. LIPITOR [Concomitant]
     Indication: HYPERCHOLESTEROLAEMIA
     Dosage: UNK
     Dates: end: 20080101
  6. ZYPREXA [Suspect]
     Indication: SCHIZOPHRENIA
     Dosage: UNK
     Route: 048
     Dates: end: 20100101
  7. TRUXAL                             /00012102/ [Concomitant]
     Indication: SCHIZOPHRENIA
     Dosage: 200 MG, QD
     Route: 048
     Dates: start: 19950101, end: 20060101
  8. DISIPAL [Concomitant]
     Dosage: 50 MG, QD
  9. SEROQUEL [Concomitant]
     Indication: SCHIZOPHRENIA
     Dosage: UNK
     Dates: start: 20030101

REACTIONS (3)
  - PSYCHOTIC DISORDER [None]
  - MOBILITY DECREASED [None]
  - ARRHYTHMIA [None]
